FAERS Safety Report 11043172 (Version 1)
Quarter: 2015Q2

REPORT INFORMATION
  Report Type: Other
  Country: US (occurrence: US)
  Receive Date: 20150417
  Receipt Date: 20150417
  Transmission Date: 20150821
  Serious: Yes (Hospitalization, Other)
  Sender: FDA-Public Use
  Company Number: US-SHIRE-US201503167

PATIENT
  Age: 36 Year
  Sex: Female

DRUGS (2)
  1. CINRYZE [Suspect]
     Active Substance: HUMAN C1-ESTERASE INHIBITOR
     Indication: HEREDITARY ANGIOEDEMA
     Dosage: 2000 UNITS, OTHER, EVERY 3-4 DAYS
     Route: 042
     Dates: start: 20120830
  2. CINRYZE [Suspect]
     Active Substance: HUMAN C1-ESTERASE INHIBITOR
     Indication: PROPHYLAXIS

REACTIONS (3)
  - Localised oedema [Unknown]
  - Prescribed overdose [Not Recovered/Not Resolved]
  - Gastrointestinal obstruction [Unknown]

NARRATIVE: CASE EVENT DATE: 20120830
